FAERS Safety Report 14305558 (Version 1)
Quarter: 2017Q4

REPORT INFORMATION
  Report Type: Report from Study
  Country: JP (occurrence: JP)
  Receive Date: 20171219
  Receipt Date: 20171219
  Transmission Date: 20180321
  Serious: Yes (Hospitalization)
  Sender: FDA-Public Use
  Company Number: JP-OTSUKA-006983

PATIENT
  Age: 49 Year
  Sex: Female

DRUGS (19)
  1. ARIPIPRAZOLE. [Suspect]
     Active Substance: ARIPIPRAZOLE
     Dosage: 12 MG, QD
     Route: 048
     Dates: start: 20080820, end: 20080826
  2. LUNAPRON [Concomitant]
     Dosage: 4 MG, QD
     Route: 048
     Dates: start: 20090218, end: 20090512
  3. RISPERIDONE. [Concomitant]
     Active Substance: RISPERIDONE
     Indication: SCHIZOPHRENIA
     Dosage: 2 MG, QD
     Route: 048
     Dates: start: 20090622, end: 20090623
  4. TASMOLIN [Concomitant]
     Active Substance: BIPERIDEN
     Indication: PRODUCT USED FOR UNKNOWN INDICATION
     Dosage: 1 MG, QD
     Route: 048
     Dates: start: 20090622, end: 20090623
  5. TASMOLIN [Concomitant]
     Active Substance: BIPERIDEN
     Dosage: 2 MG, QD
     Route: 048
     Dates: start: 20090624, end: 20090625
  6. TASMOLIN [Concomitant]
     Active Substance: BIPERIDEN
     Dosage: 3 MG, QD
     Route: 048
     Dates: start: 20090626
  7. ARIPIPRAZOLE. [Suspect]
     Active Substance: ARIPIPRAZOLE
     Indication: SCHIZOPHRENIA
     Dosage: 6 MG, QD
     Route: 048
     Dates: start: 20080702, end: 20080819
  8. ARIPIPRAZOLE. [Suspect]
     Active Substance: ARIPIPRAZOLE
     Dosage: 12 MG, QD
     Route: 048
     Dates: start: 20080910, end: 20090621
  9. LUNAPRON [Concomitant]
     Dosage: 2 MG, QD
     Route: 048
     Dates: start: 20090513, end: 20090604
  10. ARIPIPRAZOLE. [Suspect]
     Active Substance: ARIPIPRAZOLE
     Dosage: 3 MG, QD
     Route: 048
     Dates: start: 20090622
  11. LUNAPRON [Concomitant]
     Indication: SCHIZOPHRENIA
     Dosage: 1 MG, QD
     Route: 048
     Dates: end: 20080730
  12. LUNAPRON [Concomitant]
     Dosage: 2 MG, QD
     Route: 048
     Dates: start: 20080910, end: 20080916
  13. TRIPHEDINON [Concomitant]
     Active Substance: TRIHEXYPHENIDYL HYDROCHLORIDE
     Dosage: 2 MG, QD
     Route: 048
     Dates: start: 20080910, end: 20090604
  14. RISPERIDONE. [Concomitant]
     Active Substance: RISPERIDONE
     Dosage: 8 MG, QD
     Route: 048
     Dates: start: 20090630
  15. LUNAPRON [Concomitant]
     Dosage: 3 MG, QD
     Route: 048
     Dates: start: 20080917, end: 20090217
  16. TRIPHEDINON [Concomitant]
     Active Substance: TRIHEXYPHENIDYL HYDROCHLORIDE
     Indication: PRODUCT USED FOR UNKNOWN INDICATION
     Dosage: 2 MG, QD
     Route: 048
     Dates: end: 20080702
  17. ARIPIPRAZOLE. [Suspect]
     Active Substance: ARIPIPRAZOLE
     Dosage: 18 MG, QD
     Route: 048
     Dates: start: 20080827, end: 20080909
  18. RISPERIDONE. [Concomitant]
     Active Substance: RISPERIDONE
     Dosage: 4 MG, QD
     Route: 048
     Dates: start: 20090624, end: 20090625
  19. RISPERIDONE. [Concomitant]
     Active Substance: RISPERIDONE
     Dosage: 6 MG, QD
     Route: 048
     Dates: start: 20090626, end: 20090629

REACTIONS (7)
  - Delusion [Recovering/Resolving]
  - Ideas of reference [Recovering/Resolving]
  - Treatment noncompliance [Unknown]
  - Thinking abnormal [Recovering/Resolving]
  - Persecutory delusion [Recovering/Resolving]
  - Hallucination, auditory [Recovering/Resolving]
  - Psychomotor hyperactivity [Recovering/Resolving]

NARRATIVE: CASE EVENT DATE: 200808
